FAERS Safety Report 7428195-6 (Version None)
Quarter: 2011Q2

REPORT INFORMATION
  Report Type: 
  Country: None (occurrence: None)
  Receive Date: 20110418
  Receipt Date: 20110418
  Transmission Date: 20111010
  Serious: Yes (Hospitalization)
  Sender: FDA-Public Use
  Company Number: None

PATIENT
  Age: 66 Year
  Sex: Female

DRUGS (2)
  1. LEVOFLOXACIN [Suspect]
     Indication: PNEUMONIA
     Dosage: 1 TAB QDAY PO
     Route: 048
  2. PNEUMOVAX 23 [Suspect]
     Indication: PROPHYLAXIS
     Dosage: 1 SYRINGE X1 IM
     Route: 030

REACTIONS (1)
  - THROMBOCYTOPENIA [None]
